FAERS Safety Report 10809099 (Version 1)
Quarter: 2015Q1

REPORT INFORMATION
  Report Type: Spontaneous
  Country: US (occurrence: None)
  Receive Date: 20150213
  Receipt Date: 20150213
  Transmission Date: 20150721
  Serious: Yes (Death)
  Sender: FDA-Public Use
  Company Number: None

PATIENT
  Age: 91 Year
  Sex: Male
  Weight: 86.18 kg

DRUGS (5)
  1. WARAFIN [Suspect]
     Active Substance: WARFARIN
     Indication: ANTICOAGULANT THERAPY
     Dosage: 7.5, 1 PILL, DAILY, MOUTH
     Route: 048
     Dates: start: 2001, end: 2011
  2. VITAMINS C [Concomitant]
  3. ZINC [Concomitant]
     Active Substance: ZINC\ZINC CHLORIDE
  4. MAGNES [Concomitant]
  5. VITAMINS D [Concomitant]

REACTIONS (2)
  - Cerebral haemorrhage [None]
  - Heart rate decreased [None]

NARRATIVE: CASE EVENT DATE: 20111114
